FAERS Safety Report 8830626 (Version 1)
Quarter: 2012Q4

REPORT INFORMATION
  Report Type: 
  Country: DE (occurrence: DE)
  Receive Date: 20121009
  Receipt Date: 20121009
  Transmission Date: 20130627
  Serious: Yes (Other)
  Sender: FDA-Public Use
  Company Number: DE-CELGENEUS-062-21880-12100020

PATIENT
  Sex: Male

DRUGS (2)
  1. REVLIMID [Suspect]
     Indication: MYELOMA
     Route: 048
  2. DEXAMETHASONE [Concomitant]
     Indication: MYELOMA
     Route: 065

REACTIONS (1)
  - Myelodysplastic syndrome [Unknown]
